FAERS Safety Report 25942888 (Version 1)
Quarter: 2025Q4

REPORT INFORMATION
  Report Type: Report from Study
  Country: EU (occurrence: EU)
  Receive Date: 20251021
  Receipt Date: 20251021
  Transmission Date: 20260118
  Serious: Yes (Death)
  Sender: ABBVIE
  Company Number: EU-ABBVIE-6511241

PATIENT
  Age: 60 Year
  Sex: Male

DRUGS (1)
  1. FOSCARBIDOPA\FOSLEVODOPA [Suspect]
     Active Substance: FOSCARBIDOPA\FOSLEVODOPA
     Indication: Parkinson^s disease
     Dosage: CR: 0.38 ML/H, CRH: 0.40 ML/H, CRN: 0.27 ML/H, ED: 0.20 ML 01:00 H
     Route: 058
     Dates: start: 20240930

REACTIONS (1)
  - Death [Fatal]

NARRATIVE: CASE EVENT DATE: 20251004
